FAERS Safety Report 4673360-4 (Version None)
Quarter: 2005Q2

REPORT INFORMATION
  Report Type: 
  Country: None (occurrence: None)
  Receive Date: 20050525
  Receipt Date: 20050513
  Transmission Date: 20051028
  Serious: Yes (Hospitalization)
  Sender: FDA-Public Use
  Company Number: FR-BRISTOL-MYERS SQUIBB COMPANY-12979316

PATIENT
  Age: 58 Year
  Sex: Male

DRUGS (3)
  1. CETUXIMAB [Suspect]
     Indication: SQUAMOUS CELL CARCINOMA
     Dosage: MOST RECENT CETUXIMAB INFUSION ADMINISTERED 02-MAY-2005 (11TH). ON 09-MAY-2005 CETUXIMAB DELAYED.
     Route: 041
     Dates: start: 20050207
  2. CISPLATIN [Suspect]
     Indication: SQUAMOUS CELL CARCINOMA
     Dosage: MOST RECENT CISPLATIN INFUSION ADMINISTERED ON 18-APR-2005 (4TH).
     Route: 042
     Dates: start: 20050207
  3. FLUOROURACIL [Suspect]
     Indication: SQUAMOUS CELL CARCINOMA
     Dosage: MOST RECENT FLUOROURACIL INFUSION ADMINISTERED ON 18-APR-2005 (4TH).
     Route: 042
     Dates: start: 20050207

REACTIONS (3)
  - BURSITIS [None]
  - SKIN INFECTION [None]
  - STAPHYLOCOCCAL INFECTION [None]
